FAERS Safety Report 25153975 (Version 1)
Quarter: 2025Q2

REPORT INFORMATION
  Report Type: Spontaneous
  Country: US (occurrence: US)
  Receive Date: 20250403
  Receipt Date: 20250403
  Transmission Date: 20250716
  Serious: Yes (Life-Threatening, Hospitalization, Other)
  Sender: LUPIN
  Company Number: US-LUPIN PHARMACEUTICALS INC.-2025-02807

PATIENT
  Age: 40 Year
  Sex: Male

DRUGS (1)
  1. ARMODAFINIL [Suspect]
     Active Substance: ARMODAFINIL
     Indication: Obstructive sleep apnoea syndrome
     Route: 065

REACTIONS (5)
  - Cardiomyopathy [Recovering/Resolving]
  - Ventricular fibrillation [Unknown]
  - Cardiac arrest [Unknown]
  - Arteriospasm coronary [Unknown]
  - Aspiration [Unknown]
